FAERS Safety Report 19014283 (Version 5)
Quarter: 2021Q2

REPORT INFORMATION
  Report Type: Spontaneous
  Country: US (occurrence: US)
  Receive Date: 20210316
  Receipt Date: 20210611
  Transmission Date: 20210717
  Serious: Yes (Other)
  Sender: FDA-Public Use
  Company Number: US-ORGANON-O2103USA001621

PATIENT
  Age: 16 Year
  Sex: Female
  Weight: 55.6 kg

DRUGS (2)
  1. NEXPLANON [Suspect]
     Active Substance: ETONOGESTREL
     Dosage: 1 IMPLANT IN RIGHT UPPER ARM
     Route: 059
     Dates: start: 20210323
  2. NEXPLANON [Suspect]
     Active Substance: ETONOGESTREL
     Indication: MENSTRUATION IRREGULAR
     Dosage: 1 IMPLANT IN LEFT ARM, ONCE
     Route: 059
     Dates: start: 20151104, end: 20210226

REACTIONS (8)
  - General anaesthesia [Unknown]
  - Complication of device removal [Recovered/Resolved]
  - Surgery [Unknown]
  - Device dislocation [Recovered/Resolved]
  - Product use in unapproved indication [Unknown]
  - Complication associated with device [Recovered/Resolved]
  - Lipoma [Recovered/Resolved]
  - Device issue [Recovered/Resolved]

NARRATIVE: CASE EVENT DATE: 20151104
